FAERS Safety Report 9515019 (Version 1)
Quarter: 2013Q1

REPORT INFORMATION
  Report Type: Spontaneous
  Country: US (occurrence: None)
  Receive Date: 20130305
  Receipt Date: 20130305
  Transmission Date: 20140127
  Serious: Yes (Other)
  Sender: FDA-Public Use
  Company Number: 163-21880-12121873

PATIENT
  Age: 57 Year
  Sex: Female
  Weight: 70.31 kg

DRUGS (5)
  1. REVLIMID (LENALIDOMIDE) (CAPSULES) [Suspect]
     Indication: PLASMA CELL MYELOMA
     Dosage: 5 MG, 28 IN 28 D, PO
     Route: 048
     Dates: start: 20110831
  2. FOLTX (TRIOBE) [Concomitant]
  3. CALCIUM + VITAMIN D (LEKOVIT CA) [Concomitant]
  4. BOTOX (BOTULINUM TOXIN TYPE A) [Concomitant]
  5. FISH OIL (FISH OIL) [Concomitant]

REACTIONS (2)
  - Helicobacter infection [None]
  - Pain [None]
